FAERS Safety Report 18455142 (Version 4)
Quarter: 2021Q4

REPORT INFORMATION
  Report Type: Spontaneous
  Country: JP (occurrence: JP)
  Receive Date: 20201102
  Receipt Date: 20211013
  Transmission Date: 20220303
  Serious: Yes (Hospitalization, Other)
  Sender: FDA-Public Use
  Company Number: JP-GILEAD-2020-0502004

PATIENT
  Age: 46 Year
  Sex: Female
  Weight: 58 kg

DRUGS (16)
  1. VEMLIDY [Suspect]
     Active Substance: TENOFOVIR ALAFENAMIDE FUMARATE
     Indication: Hepatitis B
     Dosage: 25 MG, QD
     Route: 048
  2. VEMLIDY [Suspect]
     Active Substance: TENOFOVIR ALAFENAMIDE FUMARATE
     Indication: Hepatic cirrhosis
  3. SODIUM FERROUS CITRATE [Suspect]
     Active Substance: SODIUM FERROUS CITRATE
     Indication: Anaemia
     Dosage: 50 MG, BID
     Route: 048
  4. FLUTICASONE FUROATE\VILANTEROL TRIFENATATE [Concomitant]
     Active Substance: FLUTICASONE FUROATE\VILANTEROL TRIFENATATE
     Indication: Asthma
     Dosage: UNK UNK, QD
     Route: 055
  5. FLUTICASONE FUROATE\VILANTEROL TRIFENATATE [Concomitant]
     Active Substance: FLUTICASONE FUROATE\VILANTEROL TRIFENATATE
     Indication: Chronic obstructive pulmonary disease
  6. FUROSEMIDE [Concomitant]
     Active Substance: FUROSEMIDE
     Dosage: 40 MG, QD
     Route: 048
  7. SPIRONOLACTONE [Concomitant]
     Active Substance: SPIRONOLACTONE
     Dosage: 100 MG, QD
     Route: 048
  8. URSODIOL [Concomitant]
     Active Substance: URSODIOL
     Dosage: 300 MG, TID
     Route: 048
  9. MAGNESIUM OXIDE [Concomitant]
     Active Substance: MAGNESIUM OXIDE
     Dosage: 500 MG, TID
     Route: 048
  10. MAGNESIUM OXIDE [Concomitant]
     Active Substance: MAGNESIUM OXIDE
     Dosage: 1000 MG, BID
     Route: 048
  11. SODIUM PICOSULFATE [Concomitant]
     Active Substance: SODIUM PICOSULFATE
     Dosage: UNK UNK, QD
     Route: 048
  12. LEVOMEPROMAZINE [Concomitant]
     Active Substance: LEVOMEPROMAZINE
     Dosage: 50 MG, QD
     Route: 048
  13. LUNESTA [Concomitant]
     Active Substance: ESZOPICLONE
     Indication: Insomnia
     Dosage: 1 MG, QD
     Route: 048
  14. LUNESTA [Concomitant]
     Active Substance: ESZOPICLONE
     Dosage: 2 MG, QD
     Route: 048
  15. LUNESTA [Concomitant]
     Active Substance: ESZOPICLONE
     Dosage: 3 MG, QD
     Route: 048
  16. BROTIZOLAM [Concomitant]
     Active Substance: BROTIZOLAM
     Dosage: 0.25 MG, QD
     Route: 048

REACTIONS (3)
  - Cellulitis [Unknown]
  - Anaemia [Recovered/Resolved]
  - Faeces discoloured [Recovered/Resolved]

NARRATIVE: CASE EVENT DATE: 20201019
